FAERS Safety Report 25854316 (Version 1)
Quarter: 2025Q3

REPORT INFORMATION
  Report Type: Spontaneous
  Country: CN (occurrence: CN)
  Receive Date: 20250927
  Receipt Date: 20250927
  Transmission Date: 20251021
  Serious: Yes (Hospitalization, Disabling, Other)
  Sender: ABBVIE
  Company Number: CN-ABBVIE-6472292

PATIENT
  Age: 74 Year
  Sex: Female
  Weight: 54 kg

DRUGS (9)
  1. VENETOCLAX [Suspect]
     Active Substance: VENETOCLAX
     Indication: Acute myeloid leukaemia
     Dosage: 200 MILLIGRAM
     Route: 048
     Dates: start: 20250808, end: 20250809
  2. VENETOCLAX [Suspect]
     Active Substance: VENETOCLAX
     Indication: Acute myeloid leukaemia
     Dosage: 200 MILLIGRAM
     Route: 048
     Dates: start: 20250815, end: 20250828
  3. VENETOCLAX [Suspect]
     Active Substance: VENETOCLAX
     Indication: Acute myeloid leukaemia
     Dosage: 400 MILLIGRAM
     Route: 048
     Dates: start: 20250810, end: 20250814
  4. VENETOCLAX [Suspect]
     Active Substance: VENETOCLAX
     Indication: Acute myeloid leukaemia
     Dosage: 100 MILLIGRAM
     Route: 048
     Dates: start: 20250801, end: 20250807
  5. VORICONAZOLE [Concomitant]
     Active Substance: VORICONAZOLE
     Indication: Pneumonia
     Dosage: 400 MILLIGRAM, ROUTE- INTRAVENOUS DRIP
     Dates: start: 20250801, end: 20250805
  6. AZACITIDINE [Suspect]
     Active Substance: AZACITIDINE
     Indication: Acute myeloid leukaemia
     Dosage: 0.1 GRAM
     Route: 058
     Dates: start: 20250801, end: 20250807
  7. MEROPENEM [Concomitant]
     Active Substance: MEROPENEM
     Indication: Pneumonia
     Dosage: 2 GRAM, ROUTE- INTRAVENOUS DRIP
     Dates: start: 20250731, end: 20250915
  8. DAUNORUBICIN [Concomitant]
     Active Substance: DAUNORUBICIN
     Indication: Product used for unknown indication
  9. CYTARABINE [Concomitant]
     Active Substance: CYTARABINE
     Indication: Product used for unknown indication

REACTIONS (3)
  - Myelosuppression [Recovering/Resolving]
  - Pneumonia [Unknown]
  - Renal failure [Unknown]

NARRATIVE: CASE EVENT DATE: 20250802
